FAERS Safety Report 9847422 (Version 1)
Quarter: 2014Q1

REPORT INFORMATION
  Report Type: Spontaneous
  Country: HU (occurrence: HU)
  Receive Date: 20140127
  Receipt Date: 20140127
  Transmission Date: 20141002
  Serious: Yes (Life-Threatening, Hospitalization)
  Sender: FDA-Public Use
  Company Number: HU-ABBVIE-14P-076-1192939-00

PATIENT
  Age: 50 Year
  Sex: Male
  Weight: 75 kg

DRUGS (1)
  1. HUMIRA [Suspect]
     Indication: PSORIATIC ARTHROPATHY
     Route: 058
     Dates: start: 20130906, end: 201312

REACTIONS (4)
  - Ventricular fibrillation [Recovered/Resolved]
  - Acute myocardial infarction [Recovered/Resolved]
  - Upper limb fracture [Recovered/Resolved]
  - Fall [Recovered/Resolved]
